FAERS Safety Report 15262510 (Version 1)
Quarter: 2018Q3

REPORT INFORMATION
  Report Type: Spontaneous
  Country: US (occurrence: US)
  Receive Date: 20180720
  Receipt Date: 20180720
  Transmission Date: 20181010
  Serious: No
  Sender: FDA-Public Use
  Company Number: None

PATIENT
  Age: 85 Year
  Sex: Male
  Weight: 79.38 kg

DRUGS (14)
  1. CLONIDINE. [Suspect]
     Active Substance: CLONIDINE
     Indication: HYPERTENSION
     Route: 062
     Dates: start: 20180223, end: 20180225
  2. CLONIDINE. [Concomitant]
     Active Substance: CLONIDINE
  3. GLUCOSAMINE?CHONDROITIN [Concomitant]
     Active Substance: CHONDROITIN SULFATE (BOVINE)\GLUCOSAMINE SULFATE
  4. VITAMIN B12 [Concomitant]
     Active Substance: CYANOCOBALAMIN
  5. PRAVASTATIN. [Concomitant]
     Active Substance: PRAVASTATIN
  6. CALCIUM [Concomitant]
     Active Substance: CALCIUM
  7. ERGOCALCIFEROL. [Concomitant]
     Active Substance: ERGOCALCIFEROL
  8. FLUZONE?HIGH?DOSE [Concomitant]
  9. MULTIVITAMIN WITH MINERALS [Concomitant]
     Active Substance: MINERALS\VITAMINS
  10. FENOFIBRATE. [Concomitant]
     Active Substance: FENOFIBRATE
  11. VITAMIN D3 [Concomitant]
     Active Substance: CHOLECALCIFEROL
  12. AMLODIPINE [Concomitant]
     Active Substance: AMLODIPINE BESYLATE
  13. METOPROLOL SUCCINATE. [Concomitant]
     Active Substance: METOPROLOL SUCCINATE
  14. CLONIDINE HCL [Suspect]
     Active Substance: CLONIDINE HYDROCHLORIDE
     Route: 048

REACTIONS (2)
  - Abnormal dreams [None]
  - Nightmare [None]

NARRATIVE: CASE EVENT DATE: 20180223
